FAERS Safety Report 5055319-0 (Version None)
Quarter: 2006Q3

REPORT INFORMATION
  Report Type: 
  Country: None (occurrence: None)
  Receive Date: 20060714
  Receipt Date: 20060627
  Transmission Date: 20061208
  Serious: Yes (Death, Hospitalization)
  Sender: FDA-Public Use
  Company Number: IT200601001751

PATIENT
  Age: 67 Year
  Sex: Male
  Weight: 73.5 kg

DRUGS (11)
  1. PEMETREXED (PEMETREXED) [Suspect]
     Indication: MESOTHELIOMA
     Dosage: 910 MG INTRAVENOUS
     Route: 042
     Dates: start: 20050701, end: 20050812
  2. CISPLATIN [Suspect]
     Indication: MESOTHELIOMA
     Dosage: 136 MG INTRAVENOUS
     Route: 042
     Dates: start: 20050701, end: 20050812
  3. RADIATION (RADIATION) [Suspect]
     Dosage: DAILY (1/D)
     Dates: start: 20051109, end: 20051221
  4. FOLIC ACID [Concomitant]
  5. CYANOCOBALAMIN [Concomitant]
  6. DEXAMETHASONE TAB [Concomitant]
  7. VERAPAMIL [Concomitant]
  8. AMIODARONE HYDROCHLORIDE [Concomitant]
  9. ISOPTIN/GFR/ (VERAPAMIL HYDROCHLORIDE) [Concomitant]
  10. OMEPRAZOLE [Concomitant]
  11. ACETAMINOPHEN W/ CODEINE [Concomitant]

REACTIONS (13)
  - ACUTE RESPIRATORY DISTRESS SYNDROME [None]
  - ALANINE AMINOTRANSFERASE INCREASED [None]
  - ASPARTATE AMINOTRANSFERASE INCREASED [None]
  - BLOOD ALKALINE PHOSPHATASE INCREASED [None]
  - BLOOD BILIRUBIN INCREASED [None]
  - CARDIAC FAILURE [None]
  - CARDIAC TAMPONADE [None]
  - HAEMATOCRIT DECREASED [None]
  - HAEMOGLOBIN DECREASED [None]
  - PERICARDIAL EFFUSION [None]
  - PLATELET COUNT DECREASED [None]
  - RED BLOOD CELL COUNT DECREASED [None]
  - RESPIRATORY FAILURE [None]
